FAERS Safety Report 9433423 (Version 2)
Quarter: 2013Q3

REPORT INFORMATION
  Report Type: Spontaneous
  Country: DE (occurrence: DE)
  Receive Date: 20130731
  Receipt Date: 20130805
  Transmission Date: 20140515
  Serious: Yes (Other)
  Sender: FDA-Public Use
  Company Number: DE-GILEAD-2013-0080019

PATIENT
  Sex: Female

DRUGS (4)
  1. TRUVADA [Suspect]
     Indication: HIV INFECTION
     Dosage: UNK
     Dates: start: 201112
  2. NEVIRAPINE [Concomitant]
     Indication: HIV INFECTION
     Dosage: 400 DF, UNK
     Dates: start: 201112
  3. EFAVIRENZ [Concomitant]
     Indication: HIV INFECTION
     Dosage: UNK
  4. LOPINAVIR W/RITONAVIR [Concomitant]
     Indication: HIV INFECTION
     Dosage: UNK

REACTIONS (2)
  - Viral mutation identified [Unknown]
  - Drug ineffective [Unknown]
